FAERS Safety Report 7609618-6 (Version None)
Quarter: 2011Q3

REPORT INFORMATION
  Report Type: 
  Country: None (occurrence: None)
  Receive Date: 20110714
  Receipt Date: 20110712
  Transmission Date: 20111222
  Serious: Yes (Other)
  Sender: FDA-Public Use
  Company Number: US-BRISTOL-MYERS SQUIBB COMPANY-15897572

PATIENT
  Age: 51 Year
  Sex: Female
  Weight: 49 kg

DRUGS (7)
  1. ABILIFY [Suspect]
     Indication: STRESS
     Dates: start: 20110708
  2. DOXEPIN [Concomitant]
  3. LEXAPRO [Concomitant]
  4. ESTRADIOL [Concomitant]
  5. ABILIFY [Suspect]
     Indication: ANXIETY
     Dates: start: 20110708
  6. SINGULAIR [Concomitant]
  7. ABILIFY [Suspect]
     Indication: DEPRESSION
     Dates: start: 20110708

REACTIONS (3)
  - LOCAL SWELLING [None]
  - THROAT IRRITATION [None]
  - SWELLING FACE [None]
